FAERS Safety Report 9565497 (Version 1)
Quarter: 2013Q3

REPORT INFORMATION
  Report Type: Spontaneous
  Country: US (occurrence: US)
  Receive Date: 20130930
  Receipt Date: 20130930
  Transmission Date: 20140515
  Serious: Yes (Other)
  Sender: FDA-Public Use
  Company Number: US-PFIZER INC-2013276883

PATIENT
  Age: 69 Year
  Sex: Male
  Weight: 122 kg

DRUGS (3)
  1. CHANTIX [Suspect]
     Indication: SMOKING CESSATION THERAPY
     Dosage: 0.5 MG, 1X/DAY
     Dates: start: 2009
  2. CHANTIX [Suspect]
     Dosage: 0.5 MG, 1X/DAY
     Dates: start: 2013, end: 2013
  3. BABY ASPIRIN [Concomitant]
     Dosage: 81 MG, 1X/DAY

REACTIONS (2)
  - Lung neoplasm malignant [Not Recovered/Not Resolved]
  - Intentional drug misuse [Unknown]
